FAERS Safety Report 4363632-5 (Version None)
Quarter: 2004Q2

REPORT INFORMATION
  Report Type: 
  Country: None (occurrence: None)
  Receive Date: 20040524
  Receipt Date: 20040511
  Transmission Date: 20050107
  Serious: Yes (Hospitalization)
  Sender: FDA-Public Use
  Company Number: PHHO2004JP07073

PATIENT
  Age: 73 Year
  Sex: Female

DRUGS (6)
  1. DIOVAN [Suspect]
     Indication: HYPERTENSION
     Dosage: 40 MG, QD
     Route: 048
     Dates: start: 20030314, end: 20030627
  2. DAI-KENCHU-TO [Concomitant]
     Indication: CONSTIPATION
     Dosage: 7.5 G,
     Route: 048
     Dates: start: 20030614, end: 20030627
  3. GLYBURIDE [Concomitant]
     Indication: DIABETES MELLITUS
     Dosage: 625 UG,
     Route: 048
     Dates: start: 20030314, end: 20030627
  4. HALCION [Concomitant]
     Indication: INSOMNIA
     Dosage: 1 DF,
     Route: 048
     Dates: start: 20030314, end: 20030627
  5. ERISPAN [Concomitant]
     Indication: NEUROSIS
     Dosage: 2 DF,
     Route: 048
     Dates: start: 20030314, end: 20030627
  6. INSULIN [Concomitant]
     Indication: DIABETES MELLITUS

REACTIONS (5)
  - ANOREXIA [None]
  - ECZEMA [None]
  - ERYTHEMA [None]
  - MALAISE [None]
  - PRURITUS [None]
